FAERS Safety Report 16142151 (Version 1)
Quarter: 2019Q2

REPORT INFORMATION
  Report Type: Spontaneous
  Country: US (occurrence: US)
  Receive Date: 20190401
  Receipt Date: 20190401
  Transmission Date: 20190711
  Serious: No
  Sender: FDA-Public Use
  Company Number: US-SA-2019SA084367

PATIENT
  Age: 87 Year
  Sex: Female

DRUGS (1)
  1. ALLEGRA ALLERGY [Suspect]
     Active Substance: FEXOFENADINE HYDROCHLORIDE
     Indication: HYPERSENSITIVITY
     Dosage: 180 MG, QD (IT EVERYDAY AT 10:30-11:00 AM EACH DAY)
     Route: 065
     Dates: start: 20190319

REACTIONS (5)
  - Lymphoedema [Unknown]
  - Sinus disorder [Unknown]
  - Therapeutic response shortened [Unknown]
  - Nausea [Unknown]
  - Rhinorrhoea [Recovered/Resolved]
